APPROVED DRUG PRODUCT: HYDROCODONE BITARTRATE AND IBUPROFEN
Active Ingredient: HYDROCODONE BITARTRATE; IBUPROFEN
Strength: 7.5MG;200MG
Dosage Form/Route: TABLET;ORAL
Application: A204575 | Product #001 | TE Code: AB
Applicant: AUROLIFE PHARMA LLC
Approved: Jun 2, 2016 | RLD: No | RS: No | Type: RX